FAERS Safety Report 6016815-2 (Version None)
Quarter: 2008Q4

REPORT INFORMATION
  Report Type: 
  Country: None (occurrence: None)
  Receive Date: 20081219
  Receipt Date: 20081205
  Transmission Date: 20090506
  Serious: Yes (Hospitalization, Other)
  Sender: FDA-Public Use
  Company Number: ENTC2008-0408

PATIENT
  Age: 71 Year
  Sex: Male

DRUGS (6)
  1. STALEVO 100 [Suspect]
     Indication: PARKINSON'S DISEASE
     Dosage: 100/25/200MG
     Dates: start: 20080930, end: 20081022
  2. KARDEGIC [Concomitant]
  3. CALCIPARINE [Concomitant]
  4. ALLOPURINOL [Concomitant]
  5. ACTRAPID HUMAN [Concomitant]
  6. COLCHIMAX [Concomitant]

REACTIONS (3)
  - GOUT [None]
  - RENAL FAILURE [None]
  - RHABDOMYOLYSIS [None]
